FAERS Safety Report 7500797-8 (Version None)
Quarter: 2011Q2

REPORT INFORMATION
  Report Type: 
  Country: None (occurrence: None)
  Receive Date: 20110524
  Receipt Date: 20110520
  Transmission Date: 20111010
  Serious: Yes (Death, Hospitalization)
  Sender: FDA-Public Use
  Company Number: PHHO2011GB07154

PATIENT
  Sex: Female

DRUGS (4)
  1. DAUNORUBICIN HCL [Suspect]
     Indication: ACUTE MYELOID LEUKAEMIA
     Dosage: UNK
     Dates: start: 20110310, end: 20110416
  2. ETOPOSIDE [Suspect]
     Indication: ACUTE MYELOID LEUKAEMIA
     Dosage: UNK
     Dates: start: 20110310, end: 20110416
  3. CYTARABINE [Suspect]
     Indication: ACUTE MYELOID LEUKAEMIA
     Dosage: UNK
     Dates: start: 20110310, end: 20110416
  4. EVEROLIMUS [Suspect]
     Indication: ACUTE MYELOID LEUKAEMIA
     Dosage: UNK
     Route: 048
     Dates: start: 20110310, end: 20110416

REACTIONS (6)
  - THROMBOCYTOPENIA [None]
  - ANAEMIA [None]
  - DEATH [None]
  - LYMPHOPENIA [None]
  - LEUKOPENIA [None]
  - NEUTROPENIA [None]
